FAERS Safety Report 4393037-2 (Version None)
Quarter: 2004Q3

REPORT INFORMATION
  Report Type: 
  Country: None (occurrence: None)
  Receive Date: 20040708
  Receipt Date: 20031103
  Transmission Date: 20050211
  Serious: Yes (Disabling)
  Sender: FDA-Public Use
  Company Number: US-ROCHE-350630

PATIENT
  Age: 58 Year
  Sex: Female
  Weight: 74.8 kg

DRUGS (8)
  1. PEGASYS [Suspect]
     Route: 058
     Dates: start: 20030131, end: 20031231
  2. COPEGUS [Suspect]
     Route: 048
     Dates: start: 20030131, end: 20031231
  3. ANTIDEPRESSANTS [Concomitant]
  4. WELLBUTRIN SR [Concomitant]
     Indication: DEPRESSION
     Route: 048
  5. SYNTHROID [Concomitant]
     Route: 048
  6. ESTRATEST [Concomitant]
     Indication: HORMONE REPLACEMENT THERAPY
     Route: 048
  7. ESTRATAB [Concomitant]
     Indication: HORMONE REPLACEMENT THERAPY
     Route: 048
  8. PROMETRIUM [Concomitant]
     Indication: HORMONE REPLACEMENT THERAPY
     Route: 048

REACTIONS (2)
  - DEAFNESS BILATERAL [None]
  - SERUM FERRITIN INCREASED [None]
